FAERS Safety Report 8480402-7 (Version None)
Quarter: 2012Q3

REPORT INFORMATION
  Report Type: 
  Country: None (occurrence: None)
  Receive Date: 20120702
  Receipt Date: 20120626
  Transmission Date: 20120928
  Serious: Yes (Other)
  Sender: FDA-Public Use
  Company Number: AR-ROCHE-1035974

PATIENT
  Sex: Female

DRUGS (4)
  1. XOLAIR [Suspect]
     Dates: start: 20120201
  2. XOLAIR [Suspect]
     Dates: start: 20111101
  3. XOLAIR [Suspect]
     Indication: ASTHMA
     Route: 065
     Dates: start: 20110901
  4. XOLAIR [Suspect]
     Dates: start: 20111001

REACTIONS (2)
  - ASTHMATIC CRISIS [None]
  - BRONCHOPNEUMONIA [None]
